FAERS Safety Report 13251491 (Version 1)
Quarter: 2017Q1

REPORT INFORMATION
  Report Type: Report from Study
  Country: US (occurrence: US)
  Receive Date: 20170220
  Receipt Date: 20170220
  Transmission Date: 20170428
  Serious: Yes (Other)
  Sender: FDA-Public Use
  Company Number: US-AMGEN-USASL2017013907

PATIENT
  Age: 62 Year
  Sex: Male
  Weight: 93.88 kg

DRUGS (1)
  1. REPATHA [Suspect]
     Active Substance: EVOLOCUMAB
     Indication: SCLEROTHERAPY
     Dosage: 140 MG, Q2WK
     Route: 058
     Dates: start: 20161216

REACTIONS (2)
  - Off label use [Unknown]
  - Exfoliative rash [Recovering/Resolving]

NARRATIVE: CASE EVENT DATE: 20161230
